FAERS Safety Report 13564915 (Version 1)
Quarter: 2017Q2

REPORT INFORMATION
  Report Type: Spontaneous
  Country: US (occurrence: US)
  Receive Date: 20170519
  Receipt Date: 20170519
  Transmission Date: 20170830
  Serious: Yes (Hospitalization)
  Sender: FDA-Public Use
  Company Number: US-PURDUE-USA-2017-0138943

PATIENT
  Sex: Male

DRUGS (1)
  1. HYDROCODONE BITARTRATE (SIMILAR TO NDA 206627) [Suspect]
     Active Substance: HYDROCODONE BITARTRATE
     Indication: PAIN
     Route: 048

REACTIONS (9)
  - Drug withdrawal syndrome [Unknown]
  - Dysstasia [Unknown]
  - Dyskinesia [Unknown]
  - Hyperhidrosis [Unknown]
  - Back pain [Unknown]
  - Pulmonary embolism [Unknown]
  - Agitation [Unknown]
  - Neck pain [Unknown]
  - Asthenia [Unknown]

NARRATIVE: CASE EVENT DATE: 201411
